FAERS Safety Report 7661728-3 (Version None)
Quarter: 2011Q3

REPORT INFORMATION
  Report Type: 
  Country: None (occurrence: None)
  Receive Date: 20110805
  Receipt Date: 20101025
  Transmission Date: 20111222
  Serious: No
  Sender: FDA-Public Use
  Company Number: US-ABBOTT-10P-163-0681243-00

PATIENT
  Sex: Female
  Weight: 108.96 kg

DRUGS (15)
  1. NIASPAN [Suspect]
     Indication: BLOOD CHOLESTEROL
  2. VIT D [Concomitant]
     Indication: PRODUCT USED FOR UNKNOWN INDICATION
  3. NEXIUM [Concomitant]
     Indication: PRODUCT USED FOR UNKNOWN INDICATION
  4. VIT E [Concomitant]
     Indication: PRODUCT USED FOR UNKNOWN INDICATION
  5. XANAX [Concomitant]
     Indication: ANXIETY
  6. ANTIVERT [Concomitant]
     Indication: PRODUCT USED FOR UNKNOWN INDICATION
  7. BUPAP [Concomitant]
     Indication: ARTHRITIS
  8. FLAXSEED OIL [Concomitant]
     Indication: PRODUCT USED FOR UNKNOWN INDICATION
  9. AVAPRO [Concomitant]
     Indication: BLOOD PRESSURE
  10. DILTIAZEM [Concomitant]
     Indication: HYPERTENSION
  11. ASPIRIN [Concomitant]
     Indication: PRODUCT USED FOR UNKNOWN INDICATION
  12. METOPROLOL TARTRATE [Concomitant]
     Indication: BLOOD PRESSURE
  13. FLEXERIL [Concomitant]
     Indication: ARTHRITIS
  14. ZETIA [Concomitant]
     Indication: BLOOD CHOLESTEROL
  15. DICLOSENAC [Concomitant]
     Indication: ARTHRITIS

REACTIONS (2)
  - PRURITUS [None]
  - FLUSHING [None]
